FAERS Safety Report 5463367-1 (Version None)
Quarter: 2007Q3

REPORT INFORMATION
  Report Type: 
  Country: None (occurrence: None)
  Receive Date: 20070920
  Receipt Date: 20070912
  Transmission Date: 20080115
  Serious: Yes (Hospitalization)
  Sender: FDA-Public Use
  Company Number: US-AMGEN-US239880

PATIENT
  Sex: Female

DRUGS (1)
  1. ENBREL [Suspect]
     Indication: ANKYLOSING SPONDYLITIS
     Route: 058
     Dates: start: 20070725

REACTIONS (16)
  - ALOPECIA [None]
  - AMNESIA [None]
  - BLOOD PRESSURE INCREASED [None]
  - DEAFNESS NEUROSENSORY [None]
  - DYSPHONIA [None]
  - FATIGUE [None]
  - HYPOAESTHESIA [None]
  - INJECTION [None]
  - INJECTION SITE ERYTHEMA [None]
  - INJECTION SITE INDURATION [None]
  - INJECTION SITE IRRITATION [None]
  - MIGRAINE WITH AURA [None]
  - NAUSEA [None]
  - OEDEMA [None]
  - VERTIGO [None]
  - VISION BLURRED [None]
